FAERS Safety Report 6843025-9 (Version None)
Quarter: 2010Q3

REPORT INFORMATION
  Report Type: 
  Country: None (occurrence: None)
  Receive Date: 20100709
  Receipt Date: 20100625
  Transmission Date: 20110219
  Serious: No
  Sender: FDA-Public Use
  Company Number: DSJ-2010-09558

PATIENT
  Age: 69 Year
  Sex: Female
  Weight: 55.8 kg

DRUGS (3)
  1. OLMESARTAN MEDOXOMIL [Suspect]
     Indication: ESSENTIAL HYPERTENSION
     Dosage: 20 MG, PER ORAL
     Route: 048
     Dates: start: 20100305, end: 20100312
  2. BLOPRESS (CANDESARTAN CILEXETIL) (CANDESARTAN CILEXETIL) [Concomitant]
  3. CALBLOCK (AZELNIDIPINE) (AZELNIDIPINE) [Concomitant]

REACTIONS (1)
  - DRUG ERUPTION [None]
